FAERS Safety Report 6766072-4 (Version None)
Quarter: 2010Q2

REPORT INFORMATION
  Report Type: 
  Country: None (occurrence: None)
  Receive Date: 20100611
  Receipt Date: 20100604
  Transmission Date: 20101027
  Serious: Yes (Other)
  Sender: FDA-Public Use
  Company Number: B0659977A

PATIENT
  Age: 62 Year
  Sex: Male

DRUGS (1)
  1. AVODART [Suspect]
     Indication: PROSTATIC DISORDER
     Route: 065
     Dates: start: 20100601

REACTIONS (3)
  - ASTHENIA [None]
  - CIRCULATORY COLLAPSE [None]
  - DECREASED APPETITE [None]
